FAERS Safety Report 19021593 (Version 1)
Quarter: 2021Q1

REPORT INFORMATION
  Report Type: Spontaneous
  Country: CN (occurrence: CN)
  Receive Date: 20210317
  Receipt Date: 20210317
  Transmission Date: 20210420
  Serious: Yes (Hospitalization)
  Sender: FDA-Public Use
  Company Number: CN-ASTRAZENECA-2021A135900

PATIENT
  Age: 27481 Day
  Sex: Male
  Weight: 75 kg

DRUGS (1)
  1. GEFITINIB. [Suspect]
     Active Substance: GEFITINIB
     Indication: LUNG NEOPLASM MALIGNANT
     Route: 048
     Dates: start: 20181103, end: 20210301

REACTIONS (8)
  - Skin ulcer [Not Recovered/Not Resolved]
  - Skin swelling [Unknown]
  - Loss of personal independence in daily activities [Unknown]
  - Rash pruritic [Unknown]
  - Rash pustular [Unknown]
  - Rash [Unknown]
  - Dry skin [Unknown]
  - Gastrointestinal ulcer [Not Recovered/Not Resolved]

NARRATIVE: CASE EVENT DATE: 20200205
